FAERS Safety Report 15320399 (Version 1)
Quarter: 2018Q3

REPORT INFORMATION
  Report Type: Spontaneous
  Country: ES (occurrence: ES)
  Receive Date: 20180827
  Receipt Date: 20180827
  Transmission Date: 20181010
  Serious: Yes (Disabling, Other)
  Sender: FDA-Public Use
  Company Number: ES-SUN PHARMACEUTICAL INDUSTRIES LTD-2018RR-182603

PATIENT
  Age: 83 Year
  Sex: Female

DRUGS (5)
  1. ORFIDAL [Concomitant]
     Active Substance: LORAZEPAM
     Indication: PRODUCT USED FOR UNKNOWN INDICATION
     Dosage: OCASIONAL
     Route: 048
  2. IMATINIB [Suspect]
     Active Substance: IMATINIB
     Indication: CHRONIC MYELOID LEUKAEMIA
     Dosage: 1 COMPRIMIDO DIARIO, IMITANIB 400 (0?1?0), SE SUSPENDE EL 26/06/2018, SE REINTRODUCE Y SE SUSPEND...
     Route: 048
     Dates: start: 20180620
  3. SIMVASTATINA 20 [Concomitant]
     Indication: PRODUCT USED FOR UNKNOWN INDICATION
     Route: 065
  4. EXFORGE HCT 10 MG/160 MG/25 MG COMPRIMIDOS RECUBIERTOS CON PELICULA [Concomitant]
     Indication: PRODUCT USED FOR UNKNOWN INDICATION
     Route: 065
  5. ALLOPURINOL. [Suspect]
     Active Substance: ALLOPURINOL
     Indication: BLOOD URIC ACID INCREASED
     Dosage: ALOPURINOL 300 (1?0?0)
     Route: 048
     Dates: start: 20180620

REACTIONS (8)
  - Tremor [Recovering/Resolving]
  - Oesophageal pain [Recovering/Resolving]
  - Gait disturbance [Recovering/Resolving]
  - Oral pain [Recovering/Resolving]
  - Malaise [Recovering/Resolving]
  - Nausea [Recovering/Resolving]
  - Palpitations [Recovered/Resolved]
  - Diarrhoea [Recovering/Resolving]

NARRATIVE: CASE EVENT DATE: 201806
